FAERS Safety Report 9020587 (Version 1)
Quarter: 2013Q1

REPORT INFORMATION
  Report Type: Spontaneous
  Country: US (occurrence: US)
  Receive Date: 20130119
  Receipt Date: 20130119
  Transmission Date: 20140127
  Serious: No
  Sender: FDA-Public Use
  Company Number: US-ALLERGAN-1207298US

PATIENT
  Age: 41 Year
  Sex: Female

DRUGS (1)
  1. BOTOX COSMETIC [Suspect]
     Indication: SKIN WRINKLING
     Dosage: 60 UNITS, SINGLE
     Route: 030
     Dates: start: 20120511, end: 20120511

REACTIONS (4)
  - Eyelid oedema [Not Recovered/Not Resolved]
  - Asthenopia [Not Recovered/Not Resolved]
  - Muscle twitching [Not Recovered/Not Resolved]
  - Eyelid ptosis [Not Recovered/Not Resolved]
